FAERS Safety Report 8493743-4 (Version None)
Quarter: 2012Q3

REPORT INFORMATION
  Report Type: 
  Country: None (occurrence: None)
  Receive Date: 20120706
  Receipt Date: 20120628
  Transmission Date: 20120928
  Serious: Yes (Other)
  Sender: FDA-Public Use
  Company Number: PHHY2012US056561

PATIENT
  Age: 71 Year
  Sex: Female

DRUGS (3)
  1. MAGNESIUM HYDROXIDE TAB [Concomitant]
     Indication: ABDOMINAL DISCOMFORT
     Dosage: UNK
  2. ACETYLSALICYLIC ACID SRT [Suspect]
     Indication: ABDOMINAL DISCOMFORT
     Route: 048
  3. ACETAMINOPHEN [Concomitant]

REACTIONS (2)
  - DRUG HYPERSENSITIVITY [None]
  - INTESTINAL HAEMORRHAGE [None]
